FAERS Safety Report 9764600 (Version 1)
Quarter: 2013Q4

REPORT INFORMATION
  Report Type: Report from Study
  Country: US (occurrence: US)
  Receive Date: 20131217
  Receipt Date: 20131217
  Transmission Date: 20140711
  Serious: Yes (Other)
  Sender: FDA-Public Use
  Company Number: US-ROCHE-1320947

PATIENT
  Age: 42 Year
  Sex: Female
  Weight: 122.58 kg

DRUGS (1)
  1. HERCEPTIN [Suspect]
     Indication: BREAST CANCER
     Dosage: START DATE: 6 WEEKS AGO
     Route: 042

REACTIONS (1)
  - Haematemesis [Not Recovered/Not Resolved]
